FAERS Safety Report 5423078-5 (Version None)
Quarter: 2007Q3

REPORT INFORMATION
  Report Type: 
  Country: None (occurrence: None)
  Receive Date: 20070821
  Receipt Date: 20070813
  Transmission Date: 20080115
  Serious: Yes (Hospitalization, Other)
  Sender: FDA-Public Use
  Company Number: 236762K07USA

PATIENT
  Age: 40 Year
  Sex: Female

DRUGS (9)
  1. REBIF [Suspect]
     Indication: MULTIPLE SCLEROSIS
     Dosage: 44 MCG, 3 IN 1 WEEKS, SUBCUTANEOUS
     Route: 058
     Dates: start: 20070312
  2. SOMA [Concomitant]
  3. SEDAPAP (PHRENILIN) [Concomitant]
  4. LORCET-HD [Concomitant]
  5. GABAPENTIN [Concomitant]
  6. EFFEXOR [Concomitant]
  7. KLONOPIN [Concomitant]
  8. TRAZODONE (TRAZOD0NE) [Concomitant]
  9. ORAL CONTRACEPTIVE (ORAL CONTRACEPTIVE NOS) [Concomitant]

REACTIONS (3)
  - BLOOD IRON DECREASED [None]
  - HAEMATOCRIT DECREASED [None]
  - MENORRHAGIA [None]
